FAERS Safety Report 9025080 (Version 1)
Quarter: 2013Q1

REPORT INFORMATION
  Report Type: Spontaneous
  Country: JP (occurrence: JP)
  Receive Date: 20130121
  Receipt Date: 20130121
  Transmission Date: 20140127
  Serious: Yes (Other)
  Sender: FDA-Public Use
  Company Number: JP-009507513-1212JPN003015

PATIENT
  Age: 64 Year
  Sex: Male
  Weight: 86 kg

DRUGS (9)
  1. JANUVIA TABLETS 50MG [Suspect]
     Indication: DIABETES MELLITUS
     Dosage: 50 MG, QD
     Route: 048
     Dates: start: 20121114, end: 20121123
  2. MEIACT [Suspect]
     Indication: DENTAL CARE
     Dosage: 100 MG, TID
     Route: 048
     Dates: start: 20121121, end: 20121123
  3. AMARYL [Concomitant]
     Indication: DIABETES MELLITUS
     Dosage: 1 MG, QD
     Route: 048
     Dates: start: 20060922, end: 20100618
  4. AMARYL [Concomitant]
     Dosage: 1 MG, BID
     Route: 048
     Dates: start: 20100619, end: 20121123
  5. BLOPRESS [Concomitant]
     Indication: HYPERTENSION
     Dosage: 8 MG, QD
     Route: 048
     Dates: start: 20050328, end: 20121123
  6. LOXONIN [Concomitant]
     Indication: PAIN
     Dosage: 60 MG, QD
     Route: 048
     Dates: start: 20121121, end: 20121121
  7. ACTOS [Concomitant]
     Indication: DIABETES MELLITUS
     Dosage: 15 MG, QD
     Route: 048
     Dates: start: 20080730, end: 20101014
  8. ACTOS [Concomitant]
     Dosage: 15 MG, QD
     Route: 048
     Dates: start: 20110412, end: 20121113
  9. MELBIN [Concomitant]
     Indication: DIABETES MELLITUS
     Dosage: 250 MG, BID
     Route: 048
     Dates: start: 20101015, end: 20121123

REACTIONS (1)
  - Toxic skin eruption [Recovered/Resolved]
